FAERS Safety Report 11292721 (Version 2)
Quarter: 2015Q3

REPORT INFORMATION
  Report Type: Spontaneous
  Country: US (occurrence: US)
  Receive Date: 20150722
  Receipt Date: 20150728
  Transmission Date: 20151125
  Serious: Yes (Other)
  Sender: FDA-Public Use
  Company Number: US-LPDUSPRD-20150558

PATIENT
  Age: 62 Year
  Sex: Male

DRUGS (2)
  1. MYCOPHENOLATE-MOFETIL [Suspect]
     Active Substance: MYCOPHENOLATE MOFETIL
     Dosage: DOSE NOT PROVIDED
     Route: 065
  2. CYCLOSPORINE INJECTION, USP (866-10) [Suspect]
     Active Substance: CYCLOSPORINE
     Dosage: DOSE NOT PROVIDED
     Route: 065

REACTIONS (2)
  - Nail pigmentation [Unknown]
  - Squamous cell carcinoma [Unknown]
